FAERS Safety Report 6978670-3 (Version None)
Quarter: 2010Q3

REPORT INFORMATION
  Report Type: 
  Country: None (occurrence: None)
  Receive Date: 20100913
  Receipt Date: 20100901
  Transmission Date: 20110219
  Serious: Yes (Hospitalization)
  Sender: FDA-Public Use
  Company Number: A0862388A

PATIENT
  Age: 65 Year
  Sex: Female
  Weight: 50 kg

DRUGS (9)
  1. AVANDIA [Suspect]
     Dosage: 8MG PER DAY
     Route: 048
     Dates: start: 20020901
  2. METFORMIN [Concomitant]
  3. CARTIA XT [Concomitant]
  4. DIGOXIN [Concomitant]
  5. ENALAPRIL [Concomitant]
  6. LIPITOR [Concomitant]
  7. COUMADIN [Concomitant]
  8. EVISTA [Concomitant]
  9. HYDROCHLOROTHIAZIDE [Concomitant]

REACTIONS (2)
  - MYOCARDIAL INFARCTION [None]
  - VASCULAR GRAFT OCCLUSION [None]
